FAERS Safety Report 4988632-3 (Version None)
Quarter: 2006Q2

REPORT INFORMATION
  Report Type: 
  Country: None (occurrence: None)
  Receive Date: 20060502
  Receipt Date: 20050928
  Transmission Date: 20061013
  Serious: Yes (Hospitalization, Disabling)
  Sender: FDA-Public Use
  Company Number: US-ROCHE-419566

PATIENT
  Age: 13 Year
  Sex: Female
  Weight: 108.9 kg

DRUGS (1)
  1. ACCUTANE [Suspect]
     Indication: ACNE
     Route: 048
     Dates: start: 19951211, end: 19960615

REACTIONS (31)
  - ABORTION INCOMPLETE [None]
  - ANAEMIA [None]
  - ANXIETY [None]
  - CHAPPED LIPS [None]
  - COLITIS [None]
  - COLITIS ULCERATIVE [None]
  - CONTUSION [None]
  - COXSACKIE VIRAL INFECTION [None]
  - CROHN'S DISEASE [None]
  - CYST [None]
  - DERMAL CYST [None]
  - DRUG EXPOSURE DURING PREGNANCY [None]
  - DRY SKIN [None]
  - DUODENITIS [None]
  - DYSFUNCTIONAL UTERINE BLEEDING [None]
  - DYSMENORRHOEA [None]
  - FALL [None]
  - GASTRIC ULCER [None]
  - GASTROINTESTINAL DISORDER [None]
  - GASTROOESOPHAGEAL REFLUX DISEASE [None]
  - HEADACHE [None]
  - INFLAMMATORY BOWEL DISEASE [None]
  - INTESTINAL HAEMORRHAGE [None]
  - JOINT SPRAIN [None]
  - MULTI-ORGAN DISORDER [None]
  - OESOPHAGITIS [None]
  - PHOTOSENSITIVITY REACTION [None]
  - REFLUX OESOPHAGITIS [None]
  - SCAR [None]
  - SHOULDER PAIN [None]
  - VAGINITIS BACTERIAL [None]
